FAERS Safety Report 21297211 (Version 2)
Quarter: 2022Q4

REPORT INFORMATION
  Report Type: Spontaneous
  Country: GB (occurrence: GB)
  Receive Date: 20220906
  Receipt Date: 20221018
  Transmission Date: 20230112
  Serious: Yes (Other)
  Sender: FDA-Public Use
  Company Number: GB-SA-SAC20220819000819

PATIENT
  Age: 37 Year
  Sex: Female

DRUGS (1)
  1. AUBAGIO [Suspect]
     Active Substance: TERIFLUNOMIDE
     Indication: Multiple sclerosis
     Dosage: 14 MG, QD
     Route: 048
     Dates: start: 2019

REACTIONS (5)
  - Multiple sclerosis relapse [Unknown]
  - Muscular weakness [Unknown]
  - Headache [Unknown]
  - Fatigue [Unknown]
  - Bone pain [Unknown]

NARRATIVE: CASE EVENT DATE: 20220819
